FAERS Safety Report 20517299 (Version 1)
Quarter: 2022Q1

REPORT INFORMATION
  Report Type: Spontaneous
  Country: US (occurrence: None)
  Receive Date: 20220224
  Receipt Date: 20220224
  Transmission Date: 20220423
  Serious: Yes (Death)
  Sender: FDA-Public Use
  Company Number: None

PATIENT
  Age: 73 Year
  Sex: Male
  Weight: 86 kg

DRUGS (1)
  1. BARICITINIB [Suspect]
     Active Substance: BARICITINIB
     Indication: Upper respiratory tract infection
     Dosage: FREQUENCY : DAILY;?
     Route: 048
     Dates: start: 20220124, end: 20220205

REACTIONS (5)
  - Cardiac arrest [None]
  - Acute respiratory failure [None]
  - Pneumonia viral [None]
  - Pneumonia bacterial [None]
  - Internal haemorrhage [None]

NARRATIVE: CASE EVENT DATE: 20220218
